FAERS Safety Report 4477412-3 (Version None)
Quarter: 2004Q4

REPORT INFORMATION
  Report Type: 
  Country: None (occurrence: None)
  Receive Date: 20041013
  Receipt Date: 20040915
  Transmission Date: 20050328
  Serious: Yes (Death)
  Sender: FDA-Public Use
  Company Number: M2004-1462

PATIENT
  Age: 45 Year
  Sex: Female

DRUGS (26)
  1. AMOXICILLIN AND CLAVULANATE POTASSIUM [Suspect]
     Indication: BRONCHOPNEUMONIA
     Dosage: 1200 MG T.D.S.; TABLE OVER LEAF
  2. RABEPRAZOLE SODIUM [Suspect]
  3. METOCLOPRAMIDE [Suspect]
  4. CALCIUM LACTOGLUCONATE/CARBONATE [Suspect]
     Dates: start: 20020927
  5. BETAMETASONE [Suspect]
  6. NYSTATIN [Suspect]
     Indication: CYSTITIS
     Dates: start: 20040927
  7. NYSTATIN [Suspect]
     Indication: ORAL CANDIDIASIS
     Dates: start: 20040927
  8. CEFACLOR [Suspect]
     Indication: CYSTITIS
  9. CEFACLOR [Suspect]
     Indication: ORAL CANDIDIASIS
  10. OMEPRAZOLE [Suspect]
     Dosage: 20 MG
  11. CORTISONE ACETATE [Suspect]
     Dosage: 25 MG B.I.D.
  12. CALCITRIOL [Suspect]
     Dosage: 0.5 MCG AT 8 A.M.
  13. ALUMINIUM/MAGNESIUM HYDROXIDE [Suspect]
  14. FLUDROCORTISONE [Suspect]
  15. AMOXICILLIN/CLAVULANIC ACID [Suspect]
     Indication: BRONCHOPNEUMONIA
     Dosage: 1200 MG T.D.S. IV
     Route: 042
  16. LEVOFLOXACIN [Suspect]
     Indication: BRONCHOPNEUMONIA
     Dosage: 500 MG P.O.
     Route: 048
  17. FUROSEMIDE [Suspect]
     Indication: OLIGURIA
     Dosage: PO, IV
     Route: 048
     Dates: start: 20041027
  18. CANREONATE [Suspect]
     Indication: OLIGURIA
     Dosage: PO
     Route: 048
  19. DIAZEPAM [Suspect]
     Indication: AGITATION
  20. DIAZEPAM [Suspect]
     Indication: HALLUCINATION
  21. HALOPERIDOL [Suspect]
     Indication: AGITATION
  22. HALOPERIDOL [Suspect]
     Indication: HALLUCINATION
  23. ITRACONAZOLE [Suspect]
  24. PANTOPRAZOLE [Suspect]
  25. FAMIFIED CHAIN AMINO ACIDS [Suspect]
  26. CALCIUM GLUCONATE [Suspect]

REACTIONS (29)
  - AGITATION [None]
  - AORTIC VALVE SCLEROSIS [None]
  - AUTOIMMUNE HEPATITIS [None]
  - BLOOD CULTURE POSITIVE [None]
  - BRAIN OEDEMA [None]
  - BRONCHOPNEUMONIA [None]
  - CACHEXIA [None]
  - CHRONIC HEPATITIS [None]
  - CONDITION AGGRAVATED [None]
  - ENDOMETRIAL ATROPHY [None]
  - ENTEROCOCCAL INFECTION [None]
  - GASTROINTESTINAL MUCOSAL DISORDER [None]
  - HALLUCINATION [None]
  - HEPATIC FIBROSIS [None]
  - HYPOKALAEMIA [None]
  - HYPOTENSION [None]
  - LUNG INFILTRATION [None]
  - LYMPHOCYTIC INFILTRATION [None]
  - OLIGURIA [None]
  - ONYCHOMADESIS [None]
  - OVARIAN ATROPHY [None]
  - PSEUDOMONAS INFECTION [None]
  - RASH MACULAR [None]
  - RESPIRATORY DISTRESS [None]
  - SEPTIC SHOCK [None]
  - STAPHYLOCOCCAL INFECTION [None]
  - THYROID ATROPHY [None]
  - TOXIC EPIDERMAL NECROLYSIS [None]
  - VOMITING [None]
